FAERS Safety Report 10599693 (Version 3)
Quarter: 2015Q1

REPORT INFORMATION
  Report Type: Spontaneous
  Country: US (occurrence: US)
  Receive Date: 20141121
  Receipt Date: 20150212
  Transmission Date: 20150720
  Serious: No
  Sender: FDA-Public Use
  Company Number: US-GLAXOSMITHKLINE-A1089228A

PATIENT

DRUGS (12)
  1. METOPROLOL [Concomitant]
     Active Substance: METOPROLOL
  2. IMODIUM [Concomitant]
     Active Substance: LOPERAMIDE HYDROCHLORIDE
  3. PRILOSEC [Concomitant]
     Active Substance: OMEPRAZOLE MAGNESIUM
  4. ADVAIR DISKUS [Suspect]
     Active Substance: FLUTICASONE PROPIONATE\SALMETEROL XINAFOATE
     Indication: BRONCHIECTASIS
     Dosage: 250/50
     Route: 055
     Dates: start: 201210
  5. GABAPENTIN. [Concomitant]
     Active Substance: GABAPENTIN
  6. HCTZ [Concomitant]
     Active Substance: HYDROCHLOROTHIAZIDE
  7. ASPIRIN. [Concomitant]
     Active Substance: ASPIRIN
  8. ZYRTEC [Concomitant]
     Active Substance: CETIRIZINE HYDROCHLORIDE
  9. FLUTICASONE PROPIONATE NASAL SPRAY [Concomitant]
     Active Substance: FLUTICASONE PROPIONATE
  10. LOSARTAN [Concomitant]
     Active Substance: LOSARTAN
  11. RANEXA [Concomitant]
     Active Substance: RANOLAZINE
  12. PRAVASTATIN [Concomitant]
     Active Substance: PRAVASTATIN\PRAVASTATIN SODIUM

REACTIONS (5)
  - Bronchitis [Unknown]
  - Cough [Unknown]
  - Product quality issue [Unknown]
  - Oral pain [Unknown]
  - Medication error [Unknown]

NARRATIVE: CASE EVENT DATE: 201408
